FAERS Safety Report 10524816 (Version 1)
Quarter: 2014Q4

REPORT INFORMATION
  Report Type: Spontaneous
  Country: AT (occurrence: AT)
  Receive Date: 20141017
  Receipt Date: 20141017
  Transmission Date: 20150528
  Serious: Yes (Hospitalization, Other)
  Sender: FDA-Public Use
  Company Number: AT-ASTRAZENECA-2014SE77409

PATIENT
  Age: 38 Year
  Sex: Male

DRUGS (18)
  1. SEROQUEL [Suspect]
     Active Substance: QUETIAPINE FUMARATE
     Indication: INSOMNIA
     Dosage: 50-400, DAILY
     Route: 048
     Dates: start: 20140409, end: 20140714
  2. SEROQUEL [Suspect]
     Active Substance: QUETIAPINE FUMARATE
     Indication: INSOMNIA
     Dosage: 600, DAILY
     Route: 048
     Dates: start: 20140703
  3. CYMBALTA [Suspect]
     Active Substance: DULOXETINE HYDROCHLORIDE
     Dosage: 180, DAILY
     Route: 065
     Dates: start: 20140512, end: 20140702
  4. TRAMAL [Suspect]
     Active Substance: TRAMADOL
     Indication: BACK PAIN
     Dosage: 150, DAILY
     Route: 065
     Dates: start: 2012
  5. TOPAMAX [Suspect]
     Active Substance: TOPIRAMATE
     Indication: AGGRESSION
     Dosage: 50, DAILY
     Route: 065
     Dates: start: 20140618, end: 20140618
  6. TOPAMAX [Suspect]
     Active Substance: TOPIRAMATE
     Indication: AGGRESSION
     Dosage: 75, DAILY
     Route: 065
     Dates: start: 20140620, end: 20140707
  7. CYMBALTA [Suspect]
     Active Substance: DULOXETINE HYDROCHLORIDE
     Dosage: 120, DAILY
     Route: 065
     Dates: start: 20140425, end: 20140511
  8. TRAMAL [Suspect]
     Active Substance: TRAMADOL
     Indication: BACK PAIN
     Dosage: 150, DAILY
     Route: 065
     Dates: start: 20140703
  9. CYMBALTA [Suspect]
     Active Substance: DULOXETINE HYDROCHLORIDE
     Dosage: 30-90,DAILY
     Route: 065
     Dates: start: 20140410, end: 20140424
  10. SEROQUEL [Suspect]
     Active Substance: QUETIAPINE FUMARATE
     Indication: INSOMNIA
     Dosage: 50-600, DAILY
     Route: 048
     Dates: start: 20140422
  11. TRESLEEN [Concomitant]
     Active Substance: SERTRALINE HYDROCHLORIDE
     Dates: start: 20140704
  12. SEROQUEL [Suspect]
     Active Substance: QUETIAPINE FUMARATE
     Indication: INSOMNIA
     Dosage: 100, DAILY
     Route: 048
     Dates: start: 20140703
  13. TRITTICO [Suspect]
     Active Substance: TRAZODONE HYDROCHLORIDE
     Indication: INSOMNIA
     Route: 065
     Dates: start: 20140702, end: 20140703
  14. TRAMAL [Suspect]
     Active Substance: TRAMADOL
     Indication: SCIATICA
     Dosage: 150, DAILY
     Route: 065
     Dates: start: 2012
  15. TRAMAL [Suspect]
     Active Substance: TRAMADOL
     Indication: SCIATICA
     Dosage: 150, DAILY
     Route: 065
     Dates: start: 20140703
  16. TOPAMAX [Suspect]
     Active Substance: TOPIRAMATE
     Indication: AGGRESSION
     Dosage: 100, DAILY
     Route: 065
     Dates: start: 20140708
  17. PRAXITEN [Concomitant]
     Active Substance: OXAZEPAM
  18. CYMBALTA [Suspect]
     Active Substance: DULOXETINE HYDROCHLORIDE
     Dosage: 120, DAILY
     Route: 065
     Dates: start: 20140703, end: 20140706

REACTIONS (7)
  - Insomnia [Unknown]
  - Off label use [Unknown]
  - Aggression [Unknown]
  - Nightmare [Recovered/Resolved]
  - Urinary retention [Unknown]
  - Drug ineffective for unapproved indication [Unknown]
  - Stress [Unknown]

NARRATIVE: CASE EVENT DATE: 20140703
